FAERS Safety Report 9219148 (Version 2)
Quarter: 2013Q2

REPORT INFORMATION
  Report Type: Report from Study
  Country: US (occurrence: US)
  Receive Date: 20130409
  Receipt Date: 20130606
  Transmission Date: 20140414
  Serious: Yes (Hospitalization, Other)
  Sender: FDA-Public Use
  Company Number: PHEH2013US007906

PATIENT
  Age: 67 Year
  Sex: Female

DRUGS (18)
  1. TASIGNA [Suspect]
     Indication: CHRONIC MYELOID LEUKAEMIA
     Dosage: 2 DF, Q12H
     Dates: start: 20130304
  2. TASIGNA [Suspect]
     Dosage: 2 DF, Q12H
     Route: 048
     Dates: start: 20130408
  3. SPRYCEL [Suspect]
     Dosage: 1 DF, BID
     Route: 048
  4. PEPCID [Concomitant]
     Dosage: 1 DF, QD
     Route: 048
  5. AMBIEN [Concomitant]
     Dosage: 1 DF, QD
     Route: 048
  6. SIMVASTATIN [Concomitant]
     Dosage: 1 DF, QD
     Route: 048
  7. NASAL SALINE [Concomitant]
     Dosage: 0.65 %
  8. LEVOTHYROXINE [Concomitant]
     Dosage: 1 DF, QD
     Route: 048
  9. CALCIUM CITRATE +D [Concomitant]
  10. MULTIVITAMINS [Concomitant]
     Dosage: 1 DF, QD
     Route: 048
  11. DUONEB [Concomitant]
  12. OMEGA 3 [Concomitant]
     Dosage: 40 MG, QD
     Route: 048
  13. L-LYSINE [Concomitant]
     Dosage: 500 MG
  14. LASIX [Concomitant]
     Dosage: 1 DF, QD
     Route: 048
  15. POTASSIUM [Concomitant]
     Dosage: 99 MG
     Route: 048
  16. ZYRTEC [Concomitant]
     Dosage: 10 MG
     Route: 048
  17. CALCIUM [Concomitant]
     Route: 048
  18. POTASSIUM CHLORIDE [Concomitant]
     Dosage: 1 DF, QD
     Route: 048

REACTIONS (12)
  - Upper respiratory tract infection [Unknown]
  - Dyspnoea [Unknown]
  - Cough [Unknown]
  - Nasal congestion [Unknown]
  - Bronchitis [Unknown]
  - Pleural disorder [Unknown]
  - Pneumonia [Unknown]
  - Hyperthyroidism [Unknown]
  - Pruritus [Recovered/Resolved]
  - Rash [Recovered/Resolved]
  - Weight decreased [Unknown]
  - Drug ineffective [Unknown]
